FAERS Safety Report 26083115 (Version 1)
Quarter: 2025Q4

REPORT INFORMATION
  Report Type: Spontaneous
  Country: US (occurrence: None)
  Receive Date: 20251124
  Receipt Date: 20251124
  Transmission Date: 20260118
  Serious: Yes (unspecified)
  Sender: FDA-CTU
  Company Number: None

PATIENT
  Age: 39 Year
  Sex: Male
  Weight: 89 kg

DRUGS (2)
  1. QUETIAPINE FUMARATE [Suspect]
     Active Substance: QUETIAPINE FUMARATE
     Indication: Schizophrenia
     Dosage: OTHER FREQUENCY : HS ;?
     Route: 048
     Dates: start: 20240505, end: 20240509
  2. RISPERIDONE [Suspect]
     Active Substance: RISPERIDONE
     Dosage: OTHER FREQUENCY : HS;?
     Route: 048
     Dates: start: 20240508, end: 20240509

REACTIONS (5)
  - Hypotension [None]
  - Syncope [None]
  - Fatigue [None]
  - Dizziness [None]
  - Therapy cessation [None]

NARRATIVE: CASE EVENT DATE: 20240516
